FAERS Safety Report 9940779 (Version 1)
Quarter: 2014Q1

REPORT INFORMATION
  Report Type: Spontaneous
  Country: GB (occurrence: GB)
  Receive Date: 20140303
  Receipt Date: 20140303
  Transmission Date: 20141002
  Serious: Yes (Other)
  Sender: FDA-Public Use
  Company Number: GB-UCBSA-113370

PATIENT
  Age: 14 Year
  Sex: Female
  Weight: 44.9 kg

DRUGS (2)
  1. CO-CODAMOL [Suspect]
     Indication: MIGRAINE
     Dosage: DURATION: 4 HOURS
     Route: 048
     Dates: start: 20140206, end: 20140206
  2. PARACETAMOL [Concomitant]

REACTIONS (3)
  - Back pain [Unknown]
  - Hallucination [Not Recovered/Not Resolved]
  - Abdominal pain upper [Not Recovered/Not Resolved]
